FAERS Safety Report 18666945 (Version 1)
Quarter: 2020Q4

REPORT INFORMATION
  Report Type: Spontaneous
  Country: IN (occurrence: IN)
  Receive Date: 20201228
  Receipt Date: 20201228
  Transmission Date: 20210114
  Serious: Yes (Hospitalization, Other)
  Sender: FDA-Public Use
  Company Number: IN-LUPIN PHARMACEUTICALS INC.-2020-10842

PATIENT
  Age: 26 Year
  Sex: Female

DRUGS (2)
  1. CEFIXIME. [Suspect]
     Active Substance: CEFIXIME
     Indication: RASH PRURITIC
  2. CEFIXIME. [Suspect]
     Active Substance: CEFIXIME
     Indication: RASH ERYTHEMATOUS
     Dosage: 200 MILLIGRAM, BID
     Route: 065

REACTIONS (2)
  - Bacterial infection [Recovered/Resolved]
  - Acute generalised exanthematous pustulosis [Recovered/Resolved]
